FAERS Safety Report 4966873-9 (Version None)
Quarter: 2006Q2

REPORT INFORMATION
  Report Type: 
  Country: None (occurrence: None)
  Receive Date: 20060407
  Receipt Date: 20051115
  Transmission Date: 20061013
  Serious: Yes (Death, Hospitalization)
  Sender: FDA-Public Use
  Company Number: US-MERCK-0511USA02511

PATIENT
  Age: 65 Year
  Sex: Male
  Weight: 100 kg

DRUGS (7)
  1. VIOXX [Suspect]
     Indication: ARTHRITIS
     Route: 048
     Dates: start: 19990101, end: 19990801
  2. PRAVACHOL [Concomitant]
     Indication: HYPERCHOLESTEROLAEMIA
     Route: 065
     Dates: end: 19990801
  3. PRINIVIL [Concomitant]
     Indication: HYPERTENSION
     Route: 065
     Dates: end: 19990820
  4. DIZAC [Concomitant]
     Route: 065
     Dates: end: 19990801
  5. PLAVIX [Concomitant]
     Route: 065
     Dates: start: 19990701, end: 19990801
  6. ASPIRIN [Concomitant]
     Route: 065
     Dates: start: 19990101, end: 19990801
  7. GLUCOPHAGE [Concomitant]
     Route: 065
     Dates: end: 19990801

REACTIONS (12)
  - ANGINA PECTORIS [None]
  - ARTHROPATHY [None]
  - BLOOD CHOLESTEROL INCREASED [None]
  - CARDIAC DISORDER [None]
  - CHEST PAIN [None]
  - CORONARY ARTERY DISEASE [None]
  - DIABETES MELLITUS [None]
  - GOITRE [None]
  - GOUT [None]
  - HYPERTENSION [None]
  - MYOCARDIAL INFARCTION [None]
  - THYROID DISORDER [None]
